FAERS Safety Report 6409469-4 (Version None)
Quarter: 2009Q4

REPORT INFORMATION
  Report Type: 
  Country: None (occurrence: None)
  Receive Date: 20091016
  Receipt Date: 20091006
  Transmission Date: 20100525
  Serious: No
  Sender: FDA-Public Use
  Company Number: SPI200900333

PATIENT
  Age: 34 Year
  Sex: Female
  Weight: 66.2 kg

DRUGS (2)
  1. AMITIZA [Suspect]
     Indication: CONSTIPATION
     Dosage: 24 MCG, BID
     Dates: start: 20090701, end: 20090901
  2. PRISTIQ                (DESVENLAFAXINE SUCCINATE) [Concomitant]

REACTIONS (3)
  - CHEST DISCOMFORT [None]
  - DYSPNOEA [None]
  - PANIC ATTACK [None]
